FAERS Safety Report 23827189 (Version 1)
Quarter: 2024Q2

REPORT INFORMATION
  Report Type: Spontaneous
  Country: US (occurrence: US)
  Receive Date: 20240507
  Receipt Date: 20240507
  Transmission Date: 20240716
  Serious: Yes (Hospitalization)
  Sender: FDA-Public Use
  Company Number: US-Vifor (International) Inc.-VIT-2024-04046

PATIENT
  Age: 52 Year

DRUGS (1)
  1. MIRCERA [Suspect]
     Active Substance: METHOXY POLYETHYLENE GLYCOL-EPOETIN BETA
     Indication: Product used for unknown indication
     Dosage: FIRST ADMINISTRATION WAS ON AN UNSPECIFIED DATE.?SECOND ADMINISTRATION WAS ON AN UNSPECIFIED DATE IN

REACTIONS (1)
  - Hypertensive emergency [Unknown]

NARRATIVE: CASE EVENT DATE: 20240401
